FAERS Safety Report 16191304 (Version 2)
Quarter: 2019Q2

REPORT INFORMATION
  Report Type: Spontaneous
  Country: BR (occurrence: BR)
  Receive Date: 20190412
  Receipt Date: 20190509
  Transmission Date: 20190711
  Serious: Yes (Hospitalization, Other)
  Sender: FDA-Public Use
  Company Number: BR-PFIZER INC-2019149925

PATIENT
  Age: 28 Year
  Sex: Female

DRUGS (1)
  1. ESTROGENS CONJUGATED [Suspect]
     Active Substance: ESTROGENS, CONJUGATED
     Indication: ORAL CONTRACEPTION
     Dosage: UNK
     Route: 048

REACTIONS (5)
  - Porphyria non-acute [Unknown]
  - Serositis [Unknown]
  - Product use in unapproved indication [Unknown]
  - Systemic lupus erythematosus [Unknown]
  - Off label use [Unknown]
